FAERS Safety Report 8273511 (Version 7)
Quarter: 2012Q4

REPORT INFORMATION
  Report Type: 
  Country: TH (occurrence: TH)
  Receive Date: 20111202
  Receipt Date: 20121001
  Transmission Date: 20130627
  Serious: Yes (Death, Other)
  Sender: FDA-Public Use
  Company Number: TH-ROCHE-799877

PATIENT
  Age: 68 Year
  Sex: Female

DRUGS (7)
  1. RECORMON [Suspect]
     Indication: NEPHROGENIC ANAEMIA
     Route: 058
  2. RECORMON [Suspect]
     Route: 058
     Dates: start: 20080919, end: 20100304
  3. MIRCERA [Suspect]
     Indication: NEPHROGENIC ANAEMIA
     Route: 058
     Dates: start: 20100331, end: 20101215
  4. MIRCERA [Suspect]
     Route: 058
     Dates: start: 20110116, end: 20110830
  5. LIPITOR [Concomitant]
  6. FOLIC ACID [Concomitant]
  7. CALCIUM CARBONATE [Concomitant]

REACTIONS (6)
  - Septic shock [Fatal]
  - Infection [Fatal]
  - Aplasia pure red cell [Not Recovered/Not Resolved]
  - Anaemia haemolytic autoimmune [Not Recovered/Not Resolved]
  - Thrombocytopenia [Unknown]
  - Pancytopenia [Unknown]
